FAERS Safety Report 17834105 (Version 1)
Quarter: 2020Q2

REPORT INFORMATION
  Report Type: Spontaneous
  Country: ES (occurrence: ES)
  Receive Date: 20200528
  Receipt Date: 20200528
  Transmission Date: 20200714
  Serious: Yes (Death)
  Sender: FDA-Public Use
  Company Number: ES-BAUSCH-BL-2020-015364

PATIENT
  Age: 88 Year
  Sex: Male
  Weight: 69 kg

DRUGS (9)
  1. DEPRAX [Concomitant]
     Indication: DEMENTIA ALZHEIMER^S TYPE
     Dosage: 1 TABLET EACH DAY?60 TABLETS
     Dates: start: 20180315
  2. QUETIAPINA [Concomitant]
     Active Substance: QUETIAPINE
     Indication: DEMENTIA ALZHEIMER^S TYPE
     Dosage: 1 TABLET EACH DAY?60 COATED TABLETS
     Dates: start: 20180315
  3. DIAZEPAM. [Concomitant]
     Active Substance: DIAZEPAM
     Indication: AGITATION
     Dosage: 1 CONTAINER EVERY 90 DAYS (AS REQUIRED)?25 TABLETS
     Dates: start: 20190226
  4. RIVOTRIL [Concomitant]
     Active Substance: CLONAZEPAM
     Indication: DEMENTIA ALZHEIMER^S TYPE
     Dosage: 3 TABLETS EVERY DAY?60 TABLETS
     Dates: start: 20180711
  5. DISTRANEURINE [Concomitant]
     Active Substance: CLOMETHIAZOLE
     Indication: DEMENTIA ALZHEIMER^S TYPE
     Dosage: 30 CAPSULAS
     Dates: start: 20180315
  6. MEMANTINA [Concomitant]
     Active Substance: MEMANTINE HYDROCHLORIDE
     Indication: DEMENTIA ALZHEIMER^S TYPE
     Dosage: 1 TABLET EACH DAY?56 COATED TABLETS
     Dates: start: 20180315
  7. HYDROCHLOROTHIAZIDE AND LISINOPRIL [Concomitant]
     Active Substance: HYDROCHLOROTHIAZIDE\LISINOPRIL
     Indication: HYPERTENSION
     Dosage: STRENGTH ((20/12.5)MG) 1 TABLET EACH DAY?28 TABLETS
     Dates: start: 20130520
  8. ABASAGLAR [Concomitant]
     Active Substance: INSULIN GLARGINE
     Indication: TYPE 2 DIABETES MELLITUS
     Dosage: 10 IU AT BREAKFAST?STRENGTH: 100 UNITS/ML
     Dates: start: 20190314
  9. METFORMINE [Suspect]
     Active Substance: METFORMIN HYDROCHLORIDE
     Indication: TYPE 2 DIABETES MELLITUS
     Dosage: 1 TABLET AT LUNCHTIME, 1 TABLET AT DINNER?50 TABLETS
     Route: 065
     Dates: start: 20101019

REACTIONS (1)
  - Lactic acidosis [Fatal]

NARRATIVE: CASE EVENT DATE: 20190417
